FAERS Safety Report 9504414 (Version 1)
Quarter: 2013Q3

REPORT INFORMATION
  Report Type: Spontaneous
  Country: US (occurrence: US)
  Receive Date: 20130906
  Receipt Date: 20130906
  Transmission Date: 20140515
  Serious: Yes (Hospitalization)
  Sender: FDA-Public Use
  Company Number: US-BRISTOL-MYERS SQUIBB COMPANY-19337831

PATIENT
  Age: 79 Year
  Sex: Female
  Weight: 65.3 kg

DRUGS (15)
  1. WARFARIN SODIUM [Suspect]
     Indication: ATRIAL FIBRILLATION
     Dosage: 2-3 YRS AGO-SUSPECT?ALSO USED AS CONMED.?EARLIER TOOK FOR 1YR
  2. WARFARIN SODIUM [Suspect]
     Indication: STENT PLACEMENT
     Dosage: 2-3 YRS AGO-SUSPECT?ALSO USED AS CONMED.?EARLIER TOOK FOR 1YR
  3. PLAVIX [Suspect]
     Indication: STENT PLACEMENT
     Dosage: ALSO USED AS CONMED.
     Dates: start: 201209
  4. PLAVIX [Suspect]
     Indication: ATRIAL FIBRILLATION
     Dosage: ALSO USED AS CONMED.
     Dates: start: 201209
  5. CRESTOR [Concomitant]
  6. FOLBIC [Concomitant]
  7. VITAMIN D [Concomitant]
  8. HYDRALAZINE [Concomitant]
  9. HYDROCHLOROTHIAZIDE [Concomitant]
  10. POTASSIUM [Concomitant]
  11. ULTRAM [Concomitant]
  12. XANAX [Concomitant]
  13. HYDROCODONE [Concomitant]
  14. ASPIRIN [Concomitant]
  15. AMIODARONE [Concomitant]

REACTIONS (1)
  - Myocardial infarction [Unknown]
